FAERS Safety Report 21021838 (Version 1)
Quarter: 2022Q2

REPORT INFORMATION
  Report Type: Spontaneous
  Country: FR (occurrence: FR)
  Receive Date: 20220629
  Receipt Date: 20220629
  Transmission Date: 20220721
  Serious: Yes (Other)
  Sender: FDA-Public Use
  Company Number: FR-ORGANON-O2206FRA002364

PATIENT
  Age: 72 Year
  Sex: Male

DRUGS (1)
  1. LIPTRUZET [Suspect]
     Active Substance: ATORVASTATIN CALCIUM\EZETIMIBE
     Dosage: UNK
     Route: 048

REACTIONS (4)
  - Gastrointestinal tube insertion [Unknown]
  - Dysphagia [Unknown]
  - Product prescribing error [Unknown]
  - Intercepted product prescribing error [Unknown]
